FAERS Safety Report 18098502 (Version 3)
Quarter: 2020Q4

REPORT INFORMATION
  Report Type: Spontaneous
  Country: US (occurrence: US)
  Receive Date: 20200731
  Receipt Date: 20201026
  Transmission Date: 20210113
  Serious: Yes (Other)
  Sender: FDA-Public Use
  Company Number: US-PFIZER INC-2020290575

PATIENT
  Age: 89 Year
  Sex: Female

DRUGS (6)
  1. FLAGYL [Suspect]
     Active Substance: METRONIDAZOLE\METRONIDAZOLE HYDROCHLORIDE
     Dosage: 250 MG
  2. LIPITOR [Concomitant]
     Active Substance: ATORVASTATIN CALCIUM
     Dosage: UNK
  3. FLAGYL [Suspect]
     Active Substance: METRONIDAZOLE\METRONIDAZOLE HYDROCHLORIDE
     Dosage: UNK, 3X/DAY
     Dates: start: 2018
  4. CLEOCIN [CLINDAMYCIN HYDROCHLORIDE] [Concomitant]
     Dosage: UNK
  5. XALATAN [Concomitant]
     Active Substance: LATANOPROST
     Dosage: UNK
  6. NORVASC [Concomitant]
     Active Substance: AMLODIPINE BESYLATE
     Dosage: UNK

REACTIONS (11)
  - Intraocular pressure increased [Unknown]
  - Product physical issue [Unknown]
  - Brain neoplasm [Unknown]
  - Fall [Unknown]
  - Rhinorrhoea [Unknown]
  - Incorrect dosage administered [Unknown]
  - Abdominal discomfort [Unknown]
  - Impaired driving ability [Unknown]
  - Tooth disorder [Unknown]
  - Malaise [Unknown]
  - Rhinitis [Unknown]
